FAERS Safety Report 25021909 (Version 3)
Quarter: 2025Q3

REPORT INFORMATION
  Report Type: Spontaneous
  Country: US (occurrence: US)
  Receive Date: 20250228
  Receipt Date: 20250926
  Transmission Date: 20251021
  Serious: No
  Sender: BRISTOL-MYERS SQUIBB COMPANY
  Company Number: US-BRISTOL-MYERS SQUIBB COMPANY-2025-029783

PATIENT
  Age: 78 Year
  Sex: Female

DRUGS (2)
  1. POMALYST [Suspect]
     Active Substance: POMALIDOMIDE
     Indication: Plasma cell myeloma
     Dates: start: 201804
  2. POMALYST [Suspect]
     Active Substance: POMALIDOMIDE
     Dates: start: 201804

REACTIONS (9)
  - Oedema [Unknown]
  - Fatigue [Unknown]
  - General physical health deterioration [Unknown]
  - White blood cell count decreased [Unknown]
  - Back pain [Unknown]
  - Red blood cell count decreased [Unknown]
  - Blepharospasm [Unknown]
  - Tremor [Unknown]
  - Swelling [Unknown]

NARRATIVE: CASE EVENT DATE: 20250901
